FAERS Safety Report 7012832 (Version 2)
Quarter: 2013Q4

REPORT INFORMATION
  Report Type: Spontaneous
  Country: US (occurrence: None)
  Receive Date: 20090526
  Receipt Date: 20131017
  Transmission Date: 20140711
  Serious: Yes (Other)
  Sender: FDA-Public Use
  Company Number: 2009S1004056

PATIENT
  Sex: Male

DRUGS (1)
  1. POVIDONE-IODINE [Suspect]
     Dosage: PO
     Route: 048
     Dates: start: 20081007

REACTIONS (1)
  - Renal impairment [None]
